FAERS Safety Report 18913497 (Version 1)
Quarter: 2021Q1

REPORT INFORMATION
  Report Type: Report from Study
  Country: None (occurrence: JP)
  Receive Date: 20210219
  Receipt Date: 20210219
  Transmission Date: 20210420
  Serious: Yes (Hospitalization)
  Sender: FDA-Public Use
  Company Number: JP-ABBVIE-20K-087-3341085-00

PATIENT
  Age: 54 Year
  Sex: Male

DRUGS (2)
  1. DUODOPA [Suspect]
     Active Substance: CARBIDOPA\LEVODOPA
  2. DUODOPA [Suspect]
     Active Substance: CARBIDOPA\LEVODOPA
     Indication: PARKINSON^S DISEASE
     Route: 050
     Dates: start: 20200229

REACTIONS (23)
  - Gastrointestinal perforation [Unknown]
  - Ulcer [Unknown]
  - Stoma site odour [Unknown]
  - Stoma site haemorrhage [Unknown]
  - Enterocolitis [Unknown]
  - Stoma site discharge [Unknown]
  - Drug ineffective [Unknown]
  - Medical device pain [Unknown]
  - Musculoskeletal stiffness [Unknown]
  - Weight decreased [Unknown]
  - On and off phenomenon [Unknown]
  - Stoma site hypergranulation [Not Recovered/Not Resolved]
  - Malaise [Unknown]
  - Insomnia [Unknown]
  - Anaemia [Unknown]
  - Abdominal pain [Unknown]
  - Asthenia [Unknown]
  - Abdominal discomfort [Unknown]
  - Device dislocation [Unknown]
  - Abdominal distension [Unknown]
  - Constipation [Unknown]
  - Device difficult to use [Unknown]
  - Nausea [Unknown]

NARRATIVE: CASE EVENT DATE: 2020
